FAERS Safety Report 16631414 (Version 1)
Quarter: 2019Q3

REPORT INFORMATION
  Report Type: Spontaneous
  Country: US (occurrence: US)
  Receive Date: 20190725
  Receipt Date: 20190725
  Transmission Date: 20191004
  Serious: No
  Sender: FDA-Public Use
  Company Number: US-TEVA-2019-US-1082638

PATIENT
  Sex: Female
  Weight: 49.9 kg

DRUGS (4)
  1. ESTRADIOL. [Suspect]
     Active Substance: ESTRADIOL
     Indication: BONE DISORDER
  2. ESTRADIOL. [Suspect]
     Active Substance: ESTRADIOL
     Indication: CRYING
  3. ESTRADIOL. [Suspect]
     Active Substance: ESTRADIOL
     Indication: MOOD SWINGS
  4. ESTRADIOL. [Suspect]
     Active Substance: ESTRADIOL
     Indication: HOT FLUSH
     Dosage: .5 MILLIGRAM DAILY;
     Route: 048

REACTIONS (8)
  - Crying [Unknown]
  - Feeling abnormal [Unknown]
  - Hot flush [Unknown]
  - Feeling jittery [Unknown]
  - Drug ineffective [Unknown]
  - Impatience [Unknown]
  - Poor quality sleep [Unknown]
  - Mood swings [Unknown]
